FAERS Safety Report 11395570 (Version 1)
Quarter: 2015Q3

REPORT INFORMATION
  Report Type: Spontaneous
  Country: US (occurrence: None)
  Receive Date: 20150817
  Receipt Date: 20150817
  Transmission Date: 20151125
  Serious: Yes (Life-Threatening, Other)
  Sender: FDA-Public Use
  Company Number: None

PATIENT

DRUGS (1)
  1. MS CONTIN [Suspect]
     Active Substance: MORPHINE SULFATE
     Indication: PAIN

REACTIONS (3)
  - Product formulation issue [None]
  - Drug withdrawal syndrome [None]
  - Drug ineffective [None]

NARRATIVE: CASE EVENT DATE: 20150815
